FAERS Safety Report 4834786-9 (Version None)
Quarter: 2005Q4

REPORT INFORMATION
  Report Type: 
  Country: None (occurrence: None)
  Receive Date: 20051114
  Receipt Date: 20051101
  Transmission Date: 20060501
  Serious: Yes (Other)
  Sender: FDA-Public Use
  Company Number: USA0506101304

PATIENT
  Age: 77 Year
  Sex: Female
  Weight: 56 kg

DRUGS (7)
  1. FORTEO [Suspect]
     Indication: STRESS FRACTURE
     Dosage: 20 UG DAY
     Dates: start: 20040101
  2. HYDROCHLOROTHIAZIDE [Concomitant]
  3. LOTENSIN [Concomitant]
  4. NAPROXEN SODIUM [Concomitant]
  5. CALCIUM CARBONATE [Concomitant]
  6. VITAMIN D [Concomitant]
  7. ACETAMINOPHEN [Concomitant]

REACTIONS (3)
  - FALL [None]
  - JOINT DISLOCATION [None]
  - SHOULDER PAIN [None]
